FAERS Safety Report 11564644 (Version 6)
Quarter: 2016Q3

REPORT INFORMATION
  Report Type: Spontaneous
  Country: US (occurrence: US)
  Receive Date: 20150928
  Receipt Date: 20160722
  Transmission Date: 20161109
  Serious: No
  Sender: FDA-Public Use
  Company Number: US-PFIZER INC-2015309432

PATIENT
  Age: 40 Year
  Sex: Female

DRUGS (8)
  1. AMBIEN [Concomitant]
     Active Substance: ZOLPIDEM TARTRATE
     Dosage: UNK
  2. CALCIUM 600 + D [Concomitant]
     Active Substance: CALCIUM\VITAMIN D
     Dosage: UNK
  3. ATIVAN [Concomitant]
     Active Substance: LORAZEPAM
     Dosage: UNK
  4. IBRANCE [Suspect]
     Active Substance: PALBOCICLIB
     Indication: BREAST CANCER FEMALE
     Dosage: 125 MG, CYCLIC (21 DAYS THEN OFF 7 DAYS (REPEAT ON 4 WEEK CYCLE))
     Route: 048
  5. XGEVA [Concomitant]
     Active Substance: DENOSUMAB
     Dosage: UNK
  6. FASLODEX [Suspect]
     Active Substance: FULVESTRANT
     Dosage: UNK
  7. PERCOCET [Concomitant]
     Active Substance: ACETAMINOPHEN\OXYCODONE HYDROCHLORIDE
  8. MARINOL [Concomitant]
     Active Substance: DRONABINOL
     Dosage: UNK

REACTIONS (11)
  - Myalgia [Unknown]
  - Fatigue [Unknown]
  - Anaemia [Unknown]
  - Pharyngitis streptococcal [Recovered/Resolved]
  - Pain [Unknown]
  - Haematocrit decreased [Unknown]
  - Haemoglobin decreased [Unknown]
  - White blood cell count decreased [Unknown]
  - Arthralgia [Unknown]
  - Product use issue [Unknown]
  - Nausea [Unknown]
